FAERS Safety Report 6879369-4 (Version None)
Quarter: 2010Q3

REPORT INFORMATION
  Report Type: 
  Country: None (occurrence: None)
  Receive Date: 20100727
  Receipt Date: 20100716
  Transmission Date: 20110219
  Serious: Yes (Hospitalization)
  Sender: FDA-Public Use
  Company Number: JP-ABBOTT-10P-087-0644683-00

PATIENT
  Sex: Female
  Weight: 57 kg

DRUGS (17)
  1. HUMIRA [Suspect]
     Indication: RHEUMATOID ARTHRITIS
     Route: 058
     Dates: start: 20090807, end: 20100105
  2. HUMIRA [Suspect]
     Route: 058
     Dates: start: 20100127, end: 20100423
  3. ATORVASTATIN CALCIUM [Suspect]
     Indication: HYPERLIPIDAEMIA
     Route: 048
     Dates: start: 20100408, end: 20100430
  4. CELECOXIB [Suspect]
     Indication: RHEUMATOID ARTHRITIS
     Route: 048
     Dates: start: 20100416, end: 20100430
  5. PREDNISOLONE [Suspect]
     Indication: RHEUMATOID ARTHRITIS
     Route: 048
     Dates: end: 20100429
  6. PREDNISOLONE [Suspect]
     Dates: start: 20100430, end: 20100509
  7. PREDNISOLONE [Suspect]
     Route: 048
     Dates: start: 20100510
  8. METHOTREXATE [Concomitant]
     Indication: RHEUMATOID ARTHRITIS
     Route: 048
  9. PREDNISOLONE [Concomitant]
     Route: 048
  10. CELECOXIB [Concomitant]
     Route: 048
     Dates: start: 20100416, end: 20100430
  11. LOXOPROFEN SODIUM HYDRATE [Concomitant]
     Indication: RHEUMATOID ARTHRITIS
     Route: 062
  12. FOLIC ACID [Concomitant]
     Indication: RHEUMATOID ARTHRITIS
     Route: 048
  13. METFORMIN HYDROCHLORIDE [Concomitant]
     Indication: DIABETES MELLITUS
     Route: 048
  14. VOGLIBOSE [Concomitant]
     Indication: DIABETES MELLITUS
     Route: 048
  15. AMLODIPINE BESYLATE [Concomitant]
     Indication: HYPERTENSION
     Route: 048
  16. ATORVASTATIN CALCIUM [Concomitant]
     Route: 048
     Dates: start: 20100408, end: 20100430
  17. VALSARTAN [Concomitant]
     Indication: HYPERTENSION
     Route: 048

REACTIONS (8)
  - BACTERIAL INFECTION [None]
  - C-REACTIVE PROTEIN INCREASED [None]
  - DRUG ERUPTION [None]
  - FALL [None]
  - FRACTURE [None]
  - GASTRIC ULCER [None]
  - LYMPHADENOPATHY MEDIASTINAL [None]
  - PYREXIA [None]
